FAERS Safety Report 6755311-1 (Version None)
Quarter: 2010Q2

REPORT INFORMATION
  Report Type: 
  Country: None (occurrence: None)
  Receive Date: 20100524
  Receipt Date: 20100312
  Transmission Date: 20101027
  Serious: No
  Sender: FDA-Public Use
  Company Number: 008839

PATIENT
  Sex: Female
  Weight: 77.7 kg

DRUGS (13)
  1. CIMZIA [Suspect]
     Indication: RHEUMATOID ARTHRITIS
     Dosage: (200 MG TWICE MONTHLY SUBCUTANEOUS)
     Route: 058
     Dates: start: 20090901
  2. METHOTREXATE [Concomitant]
  3. COZAAR [Concomitant]
  4. TOPROL-XL [Concomitant]
  5. FOLIC ACID [Concomitant]
  6. VITAMIN B-COMPLEX /00282501/ [Concomitant]
  7. MUTIVITAMIN /01229101/ [Concomitant]
  8. FISH OIL [Concomitant]
  9. CALCIUM CARBONATE [Concomitant]
  10. MIRALAX [Concomitant]
  11. TYLENOL (CAPLET) [Concomitant]
  12. ASPIRIN [Concomitant]
  13. NABUMETONE [Concomitant]

REACTIONS (1)
  - WHEEZING [None]
